FAERS Safety Report 6620008-5 (Version None)
Quarter: 2010Q1

REPORT INFORMATION
  Report Type: 
  Country: None (occurrence: None)
  Receive Date: 20100309
  Receipt Date: 20100301
  Transmission Date: 20100710
  Serious: Yes (Death)
  Sender: FDA-Public Use
  Company Number: US-GILEAD-2010-0027228

PATIENT
  Sex: Male
  Weight: 118.04 kg

DRUGS (22)
  1. LETAIRIS [Suspect]
     Indication: PULMONARY ARTERIAL HYPERTENSION
     Route: 048
     Dates: start: 20081119, end: 20100222
  2. VIAGRA [Concomitant]
  3. OXYGEN [Concomitant]
  4. ASPIRIN [Concomitant]
  5. TORSEMIDE [Concomitant]
  6. ACEON [Concomitant]
  7. DIOVAN [Concomitant]
  8. INSPRA [Concomitant]
  9. THEOPHYLLINE [Concomitant]
  10. ADVAIR DISKUS 100/50 [Concomitant]
  11. XOPENEX [Concomitant]
  12. MIRTAZAPINE [Concomitant]
  13. PAROXETINE HCL [Concomitant]
  14. HYDROCODONE BITARTRATE AND ACETAMINOPHEN [Concomitant]
  15. SIMVASTATIN [Concomitant]
  16. LOVAZA [Concomitant]
  17. L-LYSINE [Concomitant]
  18. GARLIC [Concomitant]
  19. MAGNESIUM [Concomitant]
  20. VITAMIN B6 [Concomitant]
  21. VITAMIN B-12 [Concomitant]
  22. MULTI-VITAMINS [Concomitant]

REACTIONS (1)
  - CARDIAC ARREST [None]
